FAERS Safety Report 7329414-7 (Version None)
Quarter: 2011Q1

REPORT INFORMATION
  Report Type: 
  Country: None (occurrence: None)
  Receive Date: 20110225
  Receipt Date: 20110225
  Transmission Date: 20110831
  Serious: No
  Sender: FDA-Public Use
  Company Number: None

PATIENT
  Age: 54 Year
  Sex: Male
  Weight: 79.3795 kg

DRUGS (2)
  1. LEVAQUIN [Suspect]
     Indication: PNEUMONIA
     Dosage: 750MG 2X DAY IV; 750MG 1X DAY PO
     Dates: start: 20100805, end: 20100810
  2. LEVAQUIN [Suspect]
     Indication: PNEUMONIA
     Dosage: 750MG 2X DAY IV; 750MG 1X DAY PO
     Dates: start: 20100811, end: 20100812

REACTIONS (10)
  - RENAL IMPAIRMENT [None]
  - FEELING ABNORMAL [None]
  - FALL [None]
  - CONFUSIONAL STATE [None]
  - HYPOAESTHESIA [None]
  - ANAPHYLACTIC SHOCK [None]
  - ARTHRALGIA [None]
  - TENDON PAIN [None]
  - LIVER FUNCTION TEST ABNORMAL [None]
  - EMOTIONAL DISORDER [None]
